FAERS Safety Report 20803213 (Version 1)
Quarter: 2022Q2

REPORT INFORMATION
  Report Type: Spontaneous
  Country: GB (occurrence: GB)
  Receive Date: 20220509
  Receipt Date: 20220509
  Transmission Date: 20220720
  Serious: Yes (Hospitalization)
  Sender: FDA-Public Use
  Company Number: None

PATIENT
  Sex: Female

DRUGS (16)
  1. CARBIDOPA\LEVODOPA [Suspect]
     Active Substance: CARBIDOPA\LEVODOPA
     Dosage: STRENGTH : 12.5MG/50MG, ONE TO BE TAKEN THREE TIMES A DAY TITRATED UP TO TWO THREE TIMES A DAY - ON
     Route: 065
  2. CARBOCYSTEINE [Concomitant]
     Active Substance: CARBOCYSTEINE
     Dosage: 1500 MILLIGRAM DAILY;
  3. LANOLIN\LIGHT MINERAL OIL\PARAFFIN [Concomitant]
     Active Substance: LANOLIN\LIGHT MINERAL OIL\PARAFFIN
     Dosage: E45 EMOLLIENT SHOWER CREAM (RECKITT BENCKISER HEALTHCARE (UK) LTD) APPLY AS REQUIRED 2 X 200 ML
  4. LANOLIN\LIGHT MINERAL OIL\PARAFFIN [Concomitant]
     Active Substance: LANOLIN\LIGHT MINERAL OIL\PARAFFIN
     Dosage: E45 ITCH RELIEF CREAM (FORUM HEALTH PRODUCTS LTD) APPLY THREE TIMES A DAY
  5. FAMOTIDINE [Concomitant]
     Active Substance: FAMOTIDINE
     Dosage: 20 MILLIGRAM DAILY; EACH MORNING, STRENGTH : 20 MG
  6. FLUOXETINE [Concomitant]
     Active Substance: FLUOXETINE HYDROCHLORIDE
     Dosage: 60 MILLIGRAM DAILY; STRENGTH : 20 MG
  7. FOLIC ACID [Concomitant]
     Active Substance: FOLIC ACID
     Dosage: 5 MILLIGRAM DAILY; STRENGTH : 5 MG
  8. NITROGLYCERIN [Concomitant]
     Active Substance: NITROGLYCERIN
     Dosage: 400MICROGRAMS/DOSE PUMP,  SPRAY ONE OR TWO DOSES UNDER TONGUE AND THEN CLOSE MOUTH AS DIRECTED
     Route: 060
  9. POTASSIUM BICARBONATE\SODIUM ALGINATE [Concomitant]
     Active Substance: POTASSIUM BICARBONATE\SODIUM ALGINATE
     Dosage: ONE OR TWO 5ML SPOONFULS TO BE TAKEN AFTER MEALS AND AT BEDTIME
  10. LEVOTHYROXINE [Concomitant]
     Active Substance: LEVOTHYROXINE
     Dosage: 100 MICROGRAM DAILY; EACH MORNING , STRENGTH : 100 MG
  11. LOPERAMIDE [Concomitant]
     Active Substance: LOPERAMIDE
     Dosage: 1 -4 DAILY, STRENGTH : 2 MG
  12. MAGNESIUM ASPARTATE [Concomitant]
     Active Substance: MAGNESIUM ASPARTATE
     Dosage: 4 DOSAGE FORMS DAILY;  (MAGNESIUM 10MMOL) SACHETS,  IN THE MORNING AND AT TEATIME
  13. ACETAMINOPHEN [Concomitant]
     Active Substance: ACETAMINOPHEN
     Dosage: TWO FOUR TIMES A DAY AS REQUIRED , STRENGTH  500 MG
  14. PEPPERMINT OIL [Concomitant]
     Active Substance: PEPPERMINT OIL
     Dosage: .6 ML DAILY; PEPPERMINT OIL, BEFORE FOOD, STRENGTH : 0.2 ML
  15. PRAMIPEXOLE [Concomitant]
     Active Substance: PRAMIPEXOLE
     Indication: Restless legs syndrome
     Dosage: TWO NIGHT 56 TABLET, 1ON PRESCRIBED ON ADMISSION - DECISION TO CONTINUE DUE TO EXTRAPYRAMIDAL SIDE E
     Dates: start: 2015
  16. SPIRONOLACTONE [Concomitant]
     Active Substance: SPIRONOLACTONE
     Dosage: 25 MILLIGRAM DAILY; STRENGTH : 25 MG

REACTIONS (1)
  - Delirium [Unknown]
